FAERS Safety Report 8154096-4 (Version None)
Quarter: 2012Q1

REPORT INFORMATION
  Report Type: 
  Country: None (occurrence: None)
  Receive Date: 20120221
  Receipt Date: 20120216
  Transmission Date: 20120608
  Serious: Yes (Disabling)
  Sender: FDA-Public Use
  Company Number: US-MERCK-1111USA02189

PATIENT
  Age: 59 Year
  Sex: Female

DRUGS (16)
  1. FOSAMAX [Suspect]
     Route: 048
     Dates: start: 20031229, end: 20040329
  2. FOSAMAX [Suspect]
     Route: 048
     Dates: start: 20050519, end: 20060524
  3. FOSAMAX [Suspect]
     Route: 048
     Dates: start: 20090101, end: 20100101
  4. FOSAMAX [Suspect]
     Route: 048
     Dates: start: 20030210, end: 20031130
  5. FOSAMAX [Suspect]
     Route: 048
     Dates: start: 20040428, end: 20040927
  6. FOSAMAX [Suspect]
     Route: 048
     Dates: start: 20070407, end: 20080425
  7. FOSAMAX [Suspect]
     Route: 048
     Dates: start: 20090101, end: 20100101
  8. FOSAMAX [Suspect]
     Route: 048
     Dates: start: 20050519, end: 20060524
  9. FOSAMAX [Suspect]
     Route: 048
     Dates: start: 20041025, end: 20050125
  10. FOSAMAX [Suspect]
     Indication: OSTEOPOROSIS
     Route: 048
     Dates: start: 20010101, end: 20100101
  11. FOSAMAX [Suspect]
     Route: 048
     Dates: start: 20040428, end: 20040927
  12. FOSAMAX [Suspect]
     Route: 048
     Dates: start: 20041025, end: 20050125
  13. FOSAMAX [Suspect]
     Route: 048
     Dates: start: 20031229, end: 20040329
  14. FOSAMAX [Suspect]
     Indication: OSTEOPOROSIS PROPHYLAXIS
     Route: 048
     Dates: start: 20010101, end: 20100101
  15. FOSAMAX [Suspect]
     Route: 048
     Dates: start: 20030210, end: 20031130
  16. FOSAMAX [Suspect]
     Route: 048
     Dates: start: 20070407, end: 20080425

REACTIONS (7)
  - SYNOVIAL CYST [None]
  - OSTEOPOROSIS [None]
  - JOINT DISLOCATION [None]
  - TOOTH DISORDER [None]
  - FEMUR FRACTURE [None]
  - ARTHRALGIA [None]
  - MUSCULOSKELETAL DISORDER [None]
